FAERS Safety Report 7960525-9 (Version None)
Quarter: 2011Q4

REPORT INFORMATION
  Report Type: 
  Country: None (occurrence: None)
  Receive Date: 20111206
  Receipt Date: 20111202
  Transmission Date: 20120403
  Serious: Yes (Other)
  Sender: FDA-Public Use
  Company Number: US-PFIZER INC-2004058174

PATIENT
  Sex: Male
  Weight: 61 kg

DRUGS (28)
  1. ALTACE [Concomitant]
     Dosage: UNK
     Route: 065
  2. SELENIUM [Concomitant]
     Dosage: UNK
     Route: 065
  3. CRANBERRY [Concomitant]
     Dosage: UNK
     Route: 065
  4. BRAN [Concomitant]
     Dosage: UNK
     Route: 065
  5. BLUEBERRY [Concomitant]
     Indication: SUPPLEMENTATION THERAPY
     Dosage: PILL FORM, UNK
     Dates: start: 20050101
  6. LIPITOR [Suspect]
     Indication: BLOOD CHOLESTEROL INCREASED
     Dosage: 5 MG, EVENINGS
     Dates: start: 20040101
  7. ATORVASTATIN CALCIUM [Suspect]
     Dosage: 10 MG, UNK
  8. LYCOPENE [Concomitant]
     Dosage: UNK
     Route: 065
  9. VITAMIN E [Concomitant]
     Route: 065
  10. BLUEBERRY [Concomitant]
     Indication: ANTIOXIDANT THERAPY
  11. CALCIUM [Concomitant]
     Dosage: UNK
     Route: 065
  12. APPLE CIDER VINEGAR [Concomitant]
     Dosage: UNK
     Route: 065
  13. COENZYME Q10 [Concomitant]
     Dosage: UNK
     Route: 065
  14. VITAMIN TAB [Concomitant]
     Dosage: UNK
  15. LIPITOR [Suspect]
     Indication: TYPE 1 DIABETES MELLITUS
     Dosage: UNK
  16. VITAMIN D [Concomitant]
     Dosage: UNK
     Route: 065
  17. LIPITOR [Suspect]
     Indication: DIABETES MELLITUS
     Dosage: 10 MG, 1X/DAY
     Route: 048
     Dates: start: 19980101
  18. ZINC [Concomitant]
     Dosage: UNK
     Route: 065
  19. KELP [Concomitant]
     Dosage: UNK
     Route: 065
  20. VITAMIN B COMPLEX CAP [Concomitant]
     Dosage: UNK
     Route: 065
  21. ASCORBIC ACID [Concomitant]
     Route: 065
  22. BLUEBERRY [Concomitant]
     Indication: DIABETES MELLITUS
  23. ALL OTHER THERAPEUTIC PRODUCTS [Concomitant]
     Dosage: UNK
     Route: 065
  24. MINERAL TAB [Concomitant]
     Dosage: UNK
  25. LESCOL [Suspect]
     Dosage: 40 MG, UNK
     Route: 048
     Dates: start: 19980101, end: 20040101
  26. VITAMIN A [Concomitant]
     Dosage: UNK
     Route: 065
  27. VITAMIN B6 [Concomitant]
     Dosage: UNK
     Route: 065
  28. LECITHIN [Concomitant]
     Dosage: UNK
     Route: 065

REACTIONS (14)
  - ASPARTATE AMINOTRANSFERASE INCREASED [None]
  - HEPATIC ENZYME INCREASED [None]
  - ABDOMINAL DISCOMFORT [None]
  - DRUG INEFFECTIVE [None]
  - CATARACT [None]
  - BACK PAIN [None]
  - TENDONITIS [None]
  - FLATULENCE [None]
  - WRONG TECHNIQUE IN DRUG USAGE PROCESS [None]
  - FEELING ABNORMAL [None]
  - HIGH DENSITY LIPOPROTEIN DECREASED [None]
  - ARTHRALGIA [None]
  - ABDOMINAL PAIN UPPER [None]
  - OFF LABEL USE [None]
